FAERS Safety Report 17259839 (Version 6)
Quarter: 2020Q1

REPORT INFORMATION
  Report Type: Spontaneous
  Country: US (occurrence: US)
  Receive Date: 20200111
  Receipt Date: 20200214
  Transmission Date: 20200409
  Serious: No
  Sender: FDA-Public Use
  Company Number: US-UNITED THERAPEUTICS-UNT-2020-000356

PATIENT
  Sex: Female
  Weight: 86.17 kg

DRUGS (5)
  1. TYVASO [Suspect]
     Active Substance: TREPROSTINIL
     Indication: PULMONARY ARTERIAL HYPERTENSION
     Dosage: 18-54 ?G, QID
     Dates: start: 20131119
  2. UPTRAVI [Suspect]
     Active Substance: SELEXIPAG
     Indication: PRODUCT USED FOR UNKNOWN INDICATION
     Dosage: 1000 ?G (WITH FOOD), UNK
     Route: 065
     Dates: start: 20200211
  3. LETAIRIS [Concomitant]
     Active Substance: AMBRISENTAN
     Indication: PRODUCT USED FOR UNKNOWN INDICATION
     Dosage: UNK
     Route: 065
  4. TYVASO [Suspect]
     Active Substance: TREPROSTINIL
     Dosage: UNK
  5. UPTRAVI [Suspect]
     Active Substance: SELEXIPAG
     Dosage: UNK
     Route: 065

REACTIONS (10)
  - Abdominal distension [Unknown]
  - Headache [Unknown]
  - Pain [Unknown]
  - Diarrhoea [Recovered/Resolved]
  - Faeces soft [Unknown]
  - Pain in jaw [Unknown]
  - Vomiting [Unknown]
  - Blood pressure diastolic decreased [Unknown]
  - Disturbance in attention [Unknown]
  - Dizziness [Unknown]
